FAERS Safety Report 17128688 (Version 1)
Quarter: 2019Q4

REPORT INFORMATION
  Report Type: Spontaneous
  Country: CA (occurrence: CA)
  Receive Date: 20191209
  Receipt Date: 20191209
  Transmission Date: 20200122
  Serious: Yes (Other)
  Sender: FDA-Public Use
  Company Number: CA-PFIZER INC-2019524294

PATIENT
  Age: 71 Year
  Sex: Female

DRUGS (1)
  1. FENTANYL CITRATE. [Suspect]
     Active Substance: FENTANYL CITRATE
     Dosage: 12 DF, UNK
     Route: 065

REACTIONS (2)
  - Withdrawal syndrome [Not Recovered/Not Resolved]
  - Panic disorder [Not Recovered/Not Resolved]
